FAERS Safety Report 5593352-0 (Version None)
Quarter: 2008Q1

REPORT INFORMATION
  Report Type: 
  Country: None (occurrence: None)
  Receive Date: 20080114
  Receipt Date: 20071229
  Transmission Date: 20080703
  Serious: Yes (Death)
  Sender: FDA-Public Use
  Company Number: 2008BM000002

PATIENT
  Age: 21 Year
  Sex: Male

DRUGS (3)
  1. PREDNISONE [Suspect]
     Dosage: 60 MG
  2. HEPARIN [Suspect]
     Dosage: IV
     Route: 042
  3. ORAPRED [Suspect]

REACTIONS (3)
  - PROTEINURIA [None]
  - PULMONARY ARTERY THROMBOSIS [None]
  - SHOCK [None]
